FAERS Safety Report 9643515 (Version 4)
Quarter: 2014Q4

REPORT INFORMATION
  Report Type: Spontaneous
  Country: US (occurrence: US)
  Receive Date: 20131024
  Receipt Date: 20141027
  Transmission Date: 20150529
  Serious: Yes (Other)
  Sender: FDA-Public Use
  Company Number: US-PFIZER INC-2013302642

PATIENT
  Age: 67 Year
  Sex: Female
  Weight: 46.26 kg

DRUGS (3)
  1. PREMARIN [Suspect]
     Active Substance: ESTROGENS, CONJUGATED
     Indication: HORMONE REPLACEMENT THERAPY
     Dosage: 0.3 MG, 1X/DAY
     Route: 048
     Dates: start: 1981
  2. PREMARIN [Suspect]
     Active Substance: ESTROGENS, CONJUGATED
     Indication: MENOPAUSAL SYMPTOMS PROPHYLAXIS
     Dosage: 0.3 MG, 1X/DAY
     Route: 048
     Dates: start: 1989
  3. DIOVAN [Concomitant]
     Active Substance: VALSARTAN
     Indication: HYPERTENSION
     Dosage: 20 MG, 1X/DAY

REACTIONS (4)
  - Connective tissue disorder [Not Recovered/Not Resolved]
  - Blindness [Not Recovered/Not Resolved]
  - Macular degeneration [Unknown]
  - Condition aggravated [Not Recovered/Not Resolved]

NARRATIVE: CASE EVENT DATE: 2001
